FAERS Safety Report 7735389-9 (Version None)
Quarter: 2011Q3

REPORT INFORMATION
  Report Type: 
  Country: None (occurrence: None)
  Receive Date: 20110907
  Receipt Date: 20110901
  Transmission Date: 20111222
  Serious: Yes (Other)
  Sender: FDA-Public Use
  Company Number: FI-PFIZER INC-2011182174

PATIENT
  Age: 28 Year
  Sex: Male

DRUGS (5)
  1. QUETIAPINE FUMARATE [Concomitant]
     Indication: ANXIETY
     Dosage: 25MG - 200MG DAILY
     Dates: start: 20100401, end: 20100909
  2. SEPRAM [Concomitant]
     Dosage: 40 MG, 1X/DAY
     Dates: start: 20110401
  3. ZIPRASIDONE HYDROCHLORIDE [Suspect]
     Indication: DEPRESSION
     Dosage: 40 MG, 2X/DAY
     Dates: start: 20100101
  4. SEPRAM [Concomitant]
     Indication: DEPRESSION
     Dosage: 60 MG, 1X/DAY
     Dates: start: 20100609, end: 20110401
  5. QUETIAPINE FUMARATE [Concomitant]
     Dosage: 25MG 1-2 TIMES DAILY AS NEEDED
     Dates: start: 20100909

REACTIONS (13)
  - GASTRIC ULCER [None]
  - EPILEPSY [None]
  - HALLUCINATION, VISUAL [None]
  - VOMITING [None]
  - NASOPHARYNGITIS [None]
  - WEIGHT INCREASED [None]
  - HEADACHE [None]
  - SOMNOLENCE [None]
  - MUSCLE TIGHTNESS [None]
  - TOXICITY TO VARIOUS AGENTS [None]
  - LIPIDS INCREASED [None]
  - GASTROOESOPHAGEAL REFLUX DISEASE [None]
  - INSOMNIA [None]
